FAERS Safety Report 18337100 (Version 1)
Quarter: 2020Q4

REPORT INFORMATION
  Report Type: Spontaneous
  Country: US (occurrence: US)
  Receive Date: 20201001
  Receipt Date: 20201001
  Transmission Date: 20210113
  Serious: No
  Sender: FDA-Public Use
  Company Number: US-GILEAD-2020-0496607

PATIENT
  Age: 35 Year
  Sex: Female

DRUGS (4)
  1. VITAMIN D [VITAMIN D NOS] [Concomitant]
     Active Substance: VITAMIN D NOS
  2. VERACOLATE [PHENOLPHTHALEIN;RHAMNUS PURSHIANA] [Concomitant]
  3. MULTIVITAMINS PLUS IRON [Concomitant]
     Active Substance: IRON\VITAMINS
  4. SOFOSBUVIR;VELPATASVIR [Suspect]
     Active Substance: SOFOSBUVIR\VELPATASVIR
     Indication: PRODUCT USED FOR UNKNOWN INDICATION
     Dosage: 1 DOSAGE FORM, QD
     Route: 048

REACTIONS (1)
  - Product dose omission issue [Unknown]
